FAERS Safety Report 18038629 (Version 1)
Quarter: 2020Q3

REPORT INFORMATION
  Report Type: Spontaneous
  Country: GB (occurrence: GB)
  Receive Date: 20200717
  Receipt Date: 20200717
  Transmission Date: 20201103
  Serious: Yes (Hospitalization)
  Sender: FDA-Public Use
  Company Number: GB-MYLANLABS-2020M1063951

PATIENT
  Age: 86 Year
  Sex: Female
  Weight: 52.35 kg

DRUGS (13)
  1. CLOPIDOGREL [Suspect]
     Active Substance: CLOPIDOGREL BISULFATE
     Indication: AORTIC STENOSIS
     Dosage: OM
     Route: 048
     Dates: end: 20200623
  2. FERRIC CARBOXYMALTOSE [Concomitant]
     Active Substance: FERRIC CARBOXYMALTOSE
     Dosage: UNK
  3. METHOTREXATE. [Concomitant]
     Active Substance: METHOTREXATE
     Dosage: UNK
  4. APIXABAN [Concomitant]
     Active Substance: APIXABAN
  5. ATORVASTATIN [Concomitant]
     Active Substance: ATORVASTATIN
     Dosage: UNK
  6. FOLIC ACID. [Concomitant]
     Active Substance: FOLIC ACID
     Dosage: UNK
  7. ETANERCEPT [Concomitant]
     Active Substance: ETANERCEPT
     Dosage: UNK
  8. FUROSEMIDE. [Concomitant]
     Active Substance: FUROSEMIDE
     Dosage: UNK
  9. QUININE SULFATE. [Concomitant]
     Active Substance: QUININE SULFATE
     Dosage: UNK
  10. LEVOTHYROXINE. [Concomitant]
     Active Substance: LEVOTHYROXINE
     Dosage: UNK
  11. LANSOPRAZOLE. [Concomitant]
     Active Substance: LANSOPRAZOLE
     Dosage: UNK
  12. COLECALCIFEROL [Concomitant]
     Active Substance: CHOLECALCIFEROL
     Dosage: UNK
  13. FERROUS SULFATE. [Concomitant]
     Active Substance: FERROUS SULFATE
     Dosage: UNK

REACTIONS (3)
  - COVID-19 [Unknown]
  - Pulmonary fibrosis [Unknown]
  - Anaemia [Recovering/Resolving]

NARRATIVE: CASE EVENT DATE: 20200518
